FAERS Safety Report 20595600 (Version 4)
Quarter: 2025Q3

REPORT INFORMATION
  Report Type: Report from Study
  Country: KR (occurrence: KR)
  Receive Date: 20220315
  Receipt Date: 20250915
  Transmission Date: 20251020
  Serious: Yes (Other)
  Sender: TAKEDA
  Company Number: KR-TAKEDA-2022TUS015712

PATIENT
  Age: 28 Year
  Sex: Male

DRUGS (99)
  1. VEDOLIZUMAB [Suspect]
     Active Substance: VEDOLIZUMAB
     Indication: Colitis ulcerative
  2. Polybutine [Concomitant]
     Indication: Irritable bowel syndrome
     Dosage: 300 MILLIGRAM, BID
     Dates: start: 20210111, end: 20210221
  3. Polybutine [Concomitant]
     Dosage: 300 MILLIGRAM, BID
     Dates: start: 20211008
  4. CHLORPHENIRAMINE MALEATE [Concomitant]
     Active Substance: CHLORPHENIRAMINE MALEATE
     Indication: Anaphylaxis prophylaxis
     Dates: start: 20210111, end: 20210111
  5. CHLORPHENIRAMINE MALEATE [Concomitant]
     Active Substance: CHLORPHENIRAMINE MALEATE
     Dates: start: 20210125, end: 20210125
  6. CHLORPHENIRAMINE MALEATE [Concomitant]
     Active Substance: CHLORPHENIRAMINE MALEATE
     Dates: start: 20210222, end: 20210222
  7. CHLORPHENIRAMINE MALEATE [Concomitant]
     Active Substance: CHLORPHENIRAMINE MALEATE
     Dates: start: 20210419, end: 20210419
  8. CHLORPHENIRAMINE MALEATE [Concomitant]
     Active Substance: CHLORPHENIRAMINE MALEATE
     Dates: start: 20210614, end: 20210614
  9. HYDROCORTISONE SODIUM SUCCINATE [Concomitant]
     Active Substance: HYDROCORTISONE SODIUM SUCCINATE
     Indication: Anaphylaxis prophylaxis
     Dates: start: 20210111, end: 20210111
  10. HYDROCORTISONE SODIUM SUCCINATE [Concomitant]
     Active Substance: HYDROCORTISONE SODIUM SUCCINATE
     Dates: start: 20210125, end: 20210125
  11. HYDROCORTISONE SODIUM SUCCINATE [Concomitant]
     Active Substance: HYDROCORTISONE SODIUM SUCCINATE
     Dates: start: 20210222, end: 20210222
  12. HYDROCORTISONE SODIUM SUCCINATE [Concomitant]
     Active Substance: HYDROCORTISONE SODIUM SUCCINATE
     Dates: start: 20210419, end: 20210419
  13. HYDROCORTISONE SODIUM SUCCINATE [Concomitant]
     Active Substance: HYDROCORTISONE SODIUM SUCCINATE
     Dates: start: 20210614, end: 20210614
  14. HYDROCORTISONE SODIUM SUCCINATE [Concomitant]
     Active Substance: HYDROCORTISONE SODIUM SUCCINATE
     Dates: start: 20210809, end: 20210809
  15. RABEPRAZOLE SODIUM [Concomitant]
     Active Substance: RABEPRAZOLE SODIUM
     Indication: Dyspepsia
     Dosage: 20 MILLIGRAM, QD
     Dates: start: 20211206, end: 20220102
  16. Solondo [Concomitant]
     Indication: Colitis ulcerative
     Dosage: 20 MILLIGRAM, QD
     Dates: start: 20130227, end: 20130310
  17. Solondo [Concomitant]
     Dosage: 60 MILLIGRAM, QD
     Dates: start: 20130227, end: 20130310
  18. Solondo [Concomitant]
     Dosage: 40 MILLIGRAM, QD
     Dates: start: 20130311, end: 20130317
  19. Solondo [Concomitant]
     Dosage: 30 MILLIGRAM, QD
     Dates: start: 20130318, end: 20130324
  20. Solondo [Concomitant]
     Dosage: 15 MILLIGRAM, QD
     Dates: start: 20130401, end: 20130414
  21. Solondo [Concomitant]
     Dosage: 10 MILLIGRAM, QD
     Dates: start: 20130422, end: 20130505
  22. Solondo [Concomitant]
     Dosage: 20 MILLIGRAM, QD
     Dates: start: 20130617, end: 20130630
  23. Solondo [Concomitant]
     Dosage: 30 MILLIGRAM, QD
     Dates: start: 20130701, end: 20130707
  24. Solondo [Concomitant]
     Dosage: 50 MILLIGRAM, QD
     Dates: start: 20130708, end: 20130721
  25. Solondo [Concomitant]
     Dosage: 40 MILLIGRAM, QD
     Dates: start: 20130722, end: 20130728
  26. Solondo [Concomitant]
     Dosage: 30 MILLIGRAM, QD
     Dates: start: 20130729, end: 20130825
  27. Solondo [Concomitant]
     Dosage: 20 MILLIGRAM, QD
     Dates: start: 20130826, end: 20130908
  28. Solondo [Concomitant]
     Dosage: 15 MILLIGRAM, QD
     Dates: start: 20130909, end: 20131001
  29. Solondo [Concomitant]
     Dosage: 10 MILLIGRAM, QD
     Dates: start: 20131022, end: 20131029
  30. Solondo [Concomitant]
     Dosage: 5 MILLIGRAM, QD
     Dates: start: 20131030, end: 20131126
  31. Solondo [Concomitant]
     Dosage: 20 MILLIGRAM, QD
     Dates: start: 20130707, end: 20140713
  32. Solondo [Concomitant]
     Dosage: 10 MILLIGRAM, QD
     Dates: start: 20140714, end: 20140720
  33. Solondo [Concomitant]
     Dosage: 5 MILLIGRAM, QD
     Dates: start: 20140721, end: 20140803
  34. Solondo [Concomitant]
     Dosage: 10 MILLIGRAM, QD
     Dates: start: 20140804, end: 20140817
  35. Solondo [Concomitant]
     Dosage: 40 MILLIGRAM, QD
     Dates: start: 20140818, end: 20140902
  36. Solondo [Concomitant]
     Dosage: 30 MILLIGRAM, QD
     Dates: start: 20140903, end: 20140909
  37. Solondo [Concomitant]
     Dosage: 25 MILLIGRAM, QD
     Dates: start: 20140910, end: 20140916
  38. Solondo [Concomitant]
     Dosage: 20 MILLIGRAM, QD
     Dates: start: 20140917, end: 20141014
  39. Solondo [Concomitant]
     Dosage: 15 MILLIGRAM, QD
     Dates: start: 20141016, end: 20141112
  40. Solondo [Concomitant]
     Dosage: 10 MILLIGRAM, QD
     Dates: start: 20141113, end: 20150107
  41. Solondo [Concomitant]
     Dosage: 5 MILLIGRAM, QD
     Dates: start: 20150108, end: 20150204
  42. Solondo [Concomitant]
     Dosage: 5 MILLIGRAM, QD
     Dates: start: 20161010, end: 20161023
  43. Solondo [Concomitant]
     Dosage: 30 MILLIGRAM, QD
     Dates: start: 20170413, end: 20170426
  44. Solondo [Concomitant]
     Dosage: 20 MILLIGRAM, QD
     Dates: start: 20170427, end: 20170510
  45. Solondo [Concomitant]
     Dosage: 15 MILLIGRAM, QD
     Dates: start: 20170511, end: 20170525
  46. Solondo [Concomitant]
     Dosage: 05 MILLIGRAM, QD
     Dates: start: 20170531, end: 20170618
  47. Solondo [Concomitant]
     Dosage: 50 MILLIGRAM, QD
     Dates: start: 20170619, end: 20170625
  48. Solondo [Concomitant]
     Dosage: 25 MILLIGRAM, QD
     Dates: start: 20170629, end: 20170629
  49. Solondo [Concomitant]
     Dosage: 25 MILLIGRAM, QD
     Dates: start: 20170706, end: 20170706
  50. Solondo [Concomitant]
     Dosage: 25 MILLIGRAM, BID
     Dates: start: 20170630, end: 20170706
  51. Solondo [Concomitant]
     Dosage: 20 MILLIGRAM, BID
     Dates: start: 20170707, end: 20170713
  52. Solondo [Concomitant]
     Dosage: 30 MILLIGRAM, QD
     Dates: start: 20170714, end: 20170720
  53. Solondo [Concomitant]
     Dosage: 10 MILLIGRAM, QD
     Dates: start: 20170728, end: 20170803
  54. Solondo [Concomitant]
     Dosage: 40 MILLIGRAM, QD
     Dates: start: 20170809, end: 20170815
  55. Solondo [Concomitant]
     Dosage: 40 MILLIGRAM, QD
     Dates: start: 20170920, end: 20170926
  56. Solondo [Concomitant]
     Dosage: 40 MILLIGRAM, QD
     Dates: start: 20180207, end: 20180211
  57. Solondo [Concomitant]
     Dosage: 30 MILLIGRAM, QD
     Dates: start: 20180212, end: 20180216
  58. Solondo [Concomitant]
     Dosage: 20 MILLIGRAM, QD
     Dates: start: 20180217, end: 20180221
  59. Solondo [Concomitant]
     Dosage: 10 MILLIGRAM, QD
     Dates: start: 20180222, end: 20180226
  60. Solondo [Concomitant]
     Dosage: 30 MILLIGRAM, QD
     Dates: start: 20180528, end: 20180603
  61. Solondo [Concomitant]
     Dosage: 20 MILLIGRAM, QD
     Dates: start: 20180604, end: 20180610
  62. Solondo [Concomitant]
     Dosage: 10 MILLIGRAM, QD
     Dates: start: 20180611, end: 20180617
  63. Solondo [Concomitant]
     Dosage: 40 MILLIGRAM, QD
     Dates: start: 20191204, end: 20210110
  64. Solondo [Concomitant]
     Dosage: 30 MILLIGRAM, QD
     Dates: start: 20211211, end: 20211217
  65. Solondo [Concomitant]
     Dosage: 20 MILLIGRAM, QD
     Dates: start: 20211218, end: 20211224
  66. AZATHIOPRINE [Concomitant]
     Active Substance: AZATHIOPRINE
     Indication: Colitis ulcerative
     Dosage: 50 MILLIGRAM, BID
     Dates: start: 20130617, end: 20131126
  67. AZATHIOPRINE [Concomitant]
     Active Substance: AZATHIOPRINE
     Dosage: 50 MILLIGRAM, BID
     Dates: start: 20131204, end: 20131225
  68. AZATHIOPRINE [Concomitant]
     Active Substance: AZATHIOPRINE
     Dosage: 50 MILLIGRAM, QD
     Dates: start: 20131226, end: 20140204
  69. AZATHIOPRINE [Concomitant]
     Active Substance: AZATHIOPRINE
     Dosage: 25 MILLIGRAM, QD
     Dates: start: 20131226, end: 20140204
  70. AZATHIOPRINE [Concomitant]
     Active Substance: AZATHIOPRINE
     Dosage: 50 MILLIGRAM, BID
     Dates: start: 20140225, end: 20140608
  71. AZATHIOPRINE [Concomitant]
     Active Substance: AZATHIOPRINE
     Dosage: 50 MILLIGRAM, QD
     Dates: start: 20140609, end: 20140706
  72. AZATHIOPRINE [Concomitant]
     Active Substance: AZATHIOPRINE
     Dosage: 50 MILLIGRAM, BID
     Dates: start: 20140707, end: 20141014
  73. AZATHIOPRINE [Concomitant]
     Active Substance: AZATHIOPRINE
     Dosage: 50 MILLIGRAM, BID
     Dates: start: 20141016, end: 20141112
  74. AZATHIOPRINE [Concomitant]
     Active Substance: AZATHIOPRINE
     Dosage: 50 MILLIGRAM, BID
     Dates: start: 20161010, end: 20161204
  75. AZATHIOPRINE [Concomitant]
     Active Substance: AZATHIOPRINE
     Dosage: 50 MILLIGRAM, QD
     Dates: start: 20161205, end: 20170129
  76. AZATHIOPRINE [Concomitant]
     Active Substance: AZATHIOPRINE
     Dosage: 50 MILLIGRAM, QD
     Dates: start: 20170206, end: 20170402
  77. AZATHIOPRINE [Concomitant]
     Active Substance: AZATHIOPRINE
     Dosage: 25 MILLIGRAM, QD
     Dates: start: 20170403, end: 20170426
  78. AZATHIOPRINE [Concomitant]
     Active Substance: AZATHIOPRINE
     Dosage: 50 MILLIGRAM, QD
     Dates: start: 20170427, end: 20170628
  79. AZATHIOPRINE [Concomitant]
     Active Substance: AZATHIOPRINE
     Dosage: 75 MILLIGRAM, QD
     Dates: start: 20170630, end: 20170705
  80. AZATHIOPRINE [Concomitant]
     Active Substance: AZATHIOPRINE
     Dosage: 75 MILLIGRAM, QD
     Dates: start: 20170707, end: 20170805
  81. AZATHIOPRINE [Concomitant]
     Active Substance: AZATHIOPRINE
     Dosage: 100 MILLIGRAM, QD
     Dates: start: 20170809, end: 20171212
  82. AZATHIOPRINE [Concomitant]
     Active Substance: AZATHIOPRINE
     Dosage: 100 MILLIGRAM, QD
     Dates: start: 20171215, end: 20180403
  83. AZATHIOPRINE [Concomitant]
     Active Substance: AZATHIOPRINE
     Dosage: 100 MILLIGRAM, QD
     Dates: start: 20180406, end: 20200225
  84. AZATHIOPRINE [Concomitant]
     Active Substance: AZATHIOPRINE
     Dosage: 150 MILLIGRAM, QD
     Dates: start: 20200226, end: 20200421
  85. AZATHIOPRINE [Concomitant]
     Active Substance: AZATHIOPRINE
     Dosage: 100 MILLIGRAM, QD
     Dates: start: 20200422, end: 20200714
  86. AZATHIOPRINE [Concomitant]
     Active Substance: AZATHIOPRINE
     Dosage: 100 MILLIGRAM, QD
     Dates: start: 20200729, end: 20200825
  87. AZATHIOPRINE [Concomitant]
     Active Substance: AZATHIOPRINE
     Dosage: 50 MILLIGRAM, QD
     Dates: start: 20200909, end: 20200917
  88. AZATHIOPRINE [Concomitant]
     Active Substance: AZATHIOPRINE
     Dosage: 100 MILLIGRAM, QD
     Dates: start: 20201019
  89. MESALAMINE [Concomitant]
     Active Substance: MESALAMINE
     Indication: Colitis ulcerative
     Dosage: 2400 MILLIGRAM, QD
     Dates: start: 20180830, end: 20180830
  90. MESALAMINE [Concomitant]
     Active Substance: MESALAMINE
     Dosage: 2400 MILLIGRAM, QD
     Dates: start: 20181026, end: 20181220
  91. MESALAMINE [Concomitant]
     Active Substance: MESALAMINE
     Dosage: 2400 MILLIGRAM, QD
     Dates: start: 20190118, end: 20200714
  92. MESALAMINE [Concomitant]
     Active Substance: MESALAMINE
     Dosage: 2400 MILLIGRAM, QD
     Dates: start: 20200729, end: 20200825
  93. MESALAMINE [Concomitant]
     Active Substance: MESALAMINE
     Dosage: 2400 MILLIGRAM, QD
     Dates: start: 20200909, end: 20200917
  94. MESALAMINE [Concomitant]
     Active Substance: MESALAMINE
     Dosage: 2400 MILLIGRAM, QD
     Dates: start: 20200918, end: 20201015
  95. MESALAMINE [Concomitant]
     Active Substance: MESALAMINE
     Dosage: 2400 MILLIGRAM, QD
     Dates: start: 20201019, end: 20210418
  96. MESALAMINE [Concomitant]
     Active Substance: MESALAMINE
     Dosage: 2400 MILLIGRAM, QD
     Dates: start: 20210419
  97. PENTASA [Concomitant]
     Active Substance: MESALAMINE
     Indication: Colitis ulcerative
     Dosage: 1500 MILLIGRAM, TID
     Dates: start: 20130220, end: 20130414
  98. PENTASA [Concomitant]
     Active Substance: MESALAMINE
     Dosage: 1500 MILLIGRAM, TID
     Dates: start: 20130422, end: 20130616
  99. PENTASA [Concomitant]
     Active Substance: MESALAMINE
     Dosage: 1500 MILLIGRAM
     Dates: start: 20130701, end: 20131126

REACTIONS (1)
  - Haematochezia [Recovered/Resolved]

NARRATIVE: CASE EVENT DATE: 20220131
